FAERS Safety Report 5356495-2 (Version None)
Quarter: 2007Q2

REPORT INFORMATION
  Report Type: 
  Country: None (occurrence: None)
  Receive Date: 20070530
  Receipt Date: 20070116
  Transmission Date: 20071010
  Serious: Yes (Hospitalization, Other)
  Sender: FDA-Public Use
  Company Number: US200609003724

PATIENT
  Age: 40 Year
  Sex: Male
  Weight: 111.1 kg

DRUGS (1)
  1. ZYPREXA(OLANZAPINE )WN [Suspect]
     Dosage: 5 MG
     Dates: start: 19950101

REACTIONS (3)
  - CONVULSION [None]
  - DIABETES MELLITUS [None]
  - HYPERTENSION [None]
